FAERS Safety Report 6506299-X (Version None)
Quarter: 2009Q4

REPORT INFORMATION
  Report Type: 
  Country: None (occurrence: None)
  Receive Date: 20091218
  Receipt Date: 20091210
  Transmission Date: 20100525
  Serious: Yes (Other)
  Sender: FDA-Public Use
  Company Number: ES-AMGEN-UK379463

PATIENT

DRUGS (5)
  1. MIMPARA [Suspect]
     Indication: HYPERPARATHYROIDISM SECONDARY
  2. TACROLIMUS [Concomitant]
  3. MYCOPHENOLATE MOFETIL [Concomitant]
  4. STEROID ANTIBACTERIALS [Concomitant]
  5. VITAMIN D [Concomitant]

REACTIONS (5)
  - DRUG EFFECT DECREASED [None]
  - DYSPEPSIA [None]
  - HYPOCALCAEMIA [None]
  - PARATHYROIDECTOMY [None]
  - TETANY [None]
